FAERS Safety Report 8431214 (Version 4)
Quarter: 2012Q4

REPORT INFORMATION
  Report Type: 
  Country: US (occurrence: US)
  Receive Date: 20120228
  Receipt Date: 20121204
  Transmission Date: 20130627
  Serious: Yes (Other)
  Sender: FDA-Public Use
  Company Number: US-PFIZER INC-2012050918

PATIENT
  Sex: Male
  Weight: 81.6 kg

DRUGS (3)
  1. LIPITOR [Suspect]
     Indication: BLOOD CHOLESTEROL INCREASED
     Dosage: Half tablet daily
  2. LIPITOR [Suspect]
     Dosage: 40 mg, daily
  3. ATORVASTATIN CALCIUM [Suspect]
     Dosage: UNK

REACTIONS (3)
  - Eye disorder [Unknown]
  - Polyp [Unknown]
  - Feeling abnormal [Unknown]
